FAERS Safety Report 9856386 (Version 4)
Quarter: 2014Q2

REPORT INFORMATION
  Report Type: Spontaneous
  Country: JP (occurrence: JP)
  Receive Date: 20140130
  Receipt Date: 20140623
  Transmission Date: 20141212
  Serious: Yes (Hospitalization, Other)
  Sender: FDA-Public Use
  Company Number: JP-JNJFOC-20140115333

PATIENT
  Age: 67 Year
  Sex: Female

DRUGS (2)
  1. LEUSTATIN [Suspect]
     Indication: HAIRY CELL LEUKAEMIA
     Dosage: 1 COURSE
     Route: 041
     Dates: start: 20131217, end: 20131223
  2. BARACLUDE [Suspect]
     Indication: PRODUCT USED FOR UNKNOWN INDICATION
     Route: 048

REACTIONS (3)
  - Liver disorder [Unknown]
  - Eosinophil count increased [Recovered/Resolved]
  - Rash [Recovered/Resolved]
